FAERS Safety Report 11774076 (Version 2)
Quarter: 2015Q4

REPORT INFORMATION
  Report Type: Spontaneous
  Country: US (occurrence: US)
  Receive Date: 20151124
  Receipt Date: 20151204
  Transmission Date: 20160304
  Serious: No
  Sender: FDA-Public Use
  Company Number: US-WATSON-2007-02975

PATIENT
  Age: 48 Year
  Sex: Male

DRUGS (2)
  1. LORAZEPAM (WATSON LABORATORIES) [Suspect]
     Active Substance: LORAZEPAM
     Dosage: 5 TABLET, PRN (1-2QAM, QPM PRN)
     Route: 048
     Dates: start: 2002, end: 200706
  2. LORAZEPAM (WATSON LABORATORIES) [Suspect]
     Active Substance: LORAZEPAM
     Indication: ANXIETY
     Dosage: 2 MG, 4 TIMES PER DAY
     Route: 048

REACTIONS (21)
  - Feeling abnormal [None]
  - Hypoaesthesia [None]
  - Miliaria [None]
  - Anxiety [None]
  - Malaise [Not Recovered/Not Resolved]
  - Drug ineffective [None]
  - Nausea [None]
  - Flushing [None]
  - Urine output decreased [None]
  - Chromaturia [None]
  - Abnormal dreams [None]
  - Palpitations [None]
  - Vision blurred [None]
  - Mood swings [None]
  - Vision blurred [Not Recovered/Not Resolved]
  - Headache [Not Recovered/Not Resolved]
  - Night blindness [None]
  - Dysgeusia [None]
  - Asthenia [None]
  - Drug ineffective [Not Recovered/Not Resolved]
  - Nausea [Not Recovered/Not Resolved]

NARRATIVE: CASE EVENT DATE: 200704
